FAERS Safety Report 8786423 (Version 1)
Quarter: 2012Q4

REPORT INFORMATION
  Report Type: 
  Country: DK (occurrence: GB)
  Receive Date: 20120914
  Receipt Date: 20120914
  Transmission Date: 20130627
  Serious: Yes (Death)
  Sender: FDA-Public Use
  Company Number: GB-FRI-1000038544

PATIENT
  Age: 31 Year
  Sex: Male
  Weight: 85 kg

DRUGS (5)
  1. CITALOPRAM [Suspect]
     Indication: ANXIETY
     Dosage: 10mg daily
     Route: 048
     Dates: start: 20101121
  2. CITALOPRAM [Suspect]
     Indication: DEPRESSION
  3. CINCHOCAINE [Concomitant]
     Indication: HAEMORRHOIDS
     Dosage: 5mg
     Dates: start: 20120213, end: 20120514
  4. HYDROCORTISONE [Concomitant]
     Indication: HAEMORRHOIDS
     Dosage: 5 mg
     Dates: start: 20120213, end: 20120514
  5. MACROGOL [Concomitant]
     Indication: CONSTIPATION
     Route: 048
     Dates: start: 20120208, end: 20120320

REACTIONS (1)
  - Sudden death [Fatal]
